FAERS Safety Report 4799017-7 (Version None)
Quarter: 2005Q4

REPORT INFORMATION
  Report Type: 
  Country: None (occurrence: None)
  Receive Date: 20051013
  Receipt Date: 20050926
  Transmission Date: 20060501
  Serious: Yes (Hospitalization, Disabling)
  Sender: FDA-Public Use
  Company Number: 376876

PATIENT
  Age: 17 Year
  Sex: Male
  Weight: 128.8 kg

DRUGS (1)
  1. ACCUTANE [Suspect]
     Indication: ACNE
     Dates: start: 19850615

REACTIONS (32)
  - ABDOMINAL PAIN UPPER [None]
  - ANAEMIA [None]
  - ANAL FISSURE [None]
  - ANXIETY [None]
  - ATRIOVENTRICULAR BLOCK FIRST DEGREE [None]
  - BONE LESION [None]
  - CARDIAC MURMUR [None]
  - COLITIS [None]
  - COLITIS ULCERATIVE [None]
  - DEPRESSION [None]
  - DIARRHOEA [None]
  - ELECTROCARDIOGRAM ABNORMAL [None]
  - FLATULENCE [None]
  - GASTROINTESTINAL DISORDER [None]
  - HAEMORRHOIDS [None]
  - HYPERPLASIA [None]
  - HYPERTENSION [None]
  - INFLAMMATORY BOWEL DISEASE [None]
  - INTESTINAL HAEMORRHAGE [None]
  - IRRITABLE BOWEL SYNDROME [None]
  - LIGAMENT INJURY [None]
  - MULTI-ORGAN DISORDER [None]
  - OBESITY [None]
  - PALPITATIONS [None]
  - PANIC ATTACK [None]
  - PILONIDAL CYST [None]
  - PROCTALGIA [None]
  - PROCTITIS ULCERATIVE [None]
  - PROSTATITIS [None]
  - RECTAL HAEMORRHAGE [None]
  - TACHYCARDIA [None]
  - TINNITUS [None]
